FAERS Safety Report 18184177 (Version 13)
Quarter: 2022Q1

REPORT INFORMATION
  Report Type: Spontaneous
  Country: GB (occurrence: GB)
  Receive Date: 20200824
  Receipt Date: 20220210
  Transmission Date: 20220423
  Serious: Yes (Other)
  Sender: FDA-Public Use
  Company Number: GB-AUROBINDO-AUR-APL-2020-040058

PATIENT
  Age: 88 Year
  Sex: Male

DRUGS (35)
  1. AMLODIPINE [Suspect]
     Active Substance: AMLODIPINE BESYLATE
     Indication: Prostate cancer
     Dosage: UNK
     Route: 065
  2. AMLODIPINE [Suspect]
     Active Substance: AMLODIPINE BESYLATE
     Indication: Pulmonary embolism
  3. AMLODIPINE [Suspect]
     Active Substance: AMLODIPINE BESYLATE
     Indication: Prostate cancer
  4. ALLOPURINOL [Suspect]
     Active Substance: ALLOPURINOL
     Indication: Prostate cancer
     Dosage: UNK
     Route: 065
  5. ALLOPURINOL [Suspect]
     Active Substance: ALLOPURINOL
     Indication: Prostate cancer
  6. ALLOPURINOL [Suspect]
     Active Substance: ALLOPURINOL
     Indication: Pulmonary embolism
  7. ATORVASTATIN [Suspect]
     Active Substance: ATORVASTATIN
     Indication: Prostate cancer
     Dosage: UNK
     Route: 065
  8. ATORVASTATIN [Suspect]
     Active Substance: ATORVASTATIN
     Indication: Pulmonary embolism
  9. ATORVASTATIN [Suspect]
     Active Substance: ATORVASTATIN
     Indication: Prostate cancer
  10. LISINOPRIL [Suspect]
     Active Substance: LISINOPRIL
     Indication: Prostate cancer
     Dosage: UNK
     Route: 065
  11. LISINOPRIL [Suspect]
     Active Substance: LISINOPRIL
     Indication: Pulmonary embolism
  12. LISINOPRIL [Suspect]
     Active Substance: LISINOPRIL
     Indication: Prostate cancer
  13. LISINOPRIL [Suspect]
     Active Substance: LISINOPRIL
     Indication: Product used for unknown indication
  14. SIMVASTATIN [Suspect]
     Active Substance: SIMVASTATIN
     Indication: Prostate cancer
     Dosage: UNK
     Route: 065
  15. SIMVASTATIN [Suspect]
     Active Substance: SIMVASTATIN
     Indication: Pulmonary embolism
  16. EDOXABAN [Suspect]
     Active Substance: EDOXABAN
     Indication: Pulmonary embolism
     Dosage: UNK
     Route: 065
  17. EDOXABAN [Suspect]
     Active Substance: EDOXABAN
     Indication: Product used for unknown indication
  18. LEUPROLIDE ACETATE [Suspect]
     Active Substance: LEUPROLIDE ACETATE
     Indication: Pulmonary embolism
     Dosage: UNK
     Route: 065
     Dates: start: 2018
  19. LEUPROLIDE ACETATE [Suspect]
     Active Substance: LEUPROLIDE ACETATE
     Indication: Prostate cancer
  20. LEUPROLIDE ACETATE [Suspect]
     Active Substance: LEUPROLIDE ACETATE
     Indication: Prostate cancer
  21. NYSTATIN [Suspect]
     Active Substance: NYSTATIN
     Indication: Prostate cancer
     Dosage: UNKNOWN
     Route: 065
  22. NYSTATIN [Suspect]
     Active Substance: NYSTATIN
     Indication: Pulmonary embolism
  23. NYSTATIN [Suspect]
     Active Substance: NYSTATIN
     Indication: Prostate cancer
  24. LUPRON DEPOT [Suspect]
     Active Substance: LEUPROLIDE ACETATE
     Indication: Prostate cancer
     Dosage: UNK
     Route: 065
     Dates: start: 2018
  25. LUPRON DEPOT [Suspect]
     Active Substance: LEUPROLIDE ACETATE
     Indication: Pulmonary embolism
  26. LUPRON DEPOT [Suspect]
     Active Substance: LEUPROLIDE ACETATE
     Indication: Prostate cancer
  27. LUPRON DEPOT [Suspect]
     Active Substance: LEUPROLIDE ACETATE
     Indication: Product used for unknown indication
  28. UNSPECIFIED INGREDIENT [Suspect]
     Active Substance: UNSPECIFIED INGREDIENT
     Indication: Prostate cancer
     Dosage: UNK
     Route: 065
  29. UNSPECIFIED INGREDIENT [Suspect]
     Active Substance: UNSPECIFIED INGREDIENT
     Indication: Pulmonary embolism
  30. UNSPECIFIED INGREDIENT [Suspect]
     Active Substance: UNSPECIFIED INGREDIENT
     Indication: Product used for unknown indication
  31. CARBOPLATIN [Concomitant]
     Active Substance: CARBOPLATIN
     Indication: Prostate cancer
     Dosage: UNK
     Route: 065
     Dates: start: 201912
  32. CARBOPLATIN [Concomitant]
     Active Substance: CARBOPLATIN
     Indication: Chemotherapy
  33. CARBOPLATIN;ETOPOSIDE [Concomitant]
     Indication: Prostate cancer
     Dosage: UNK (4 CYCLES)
     Route: 065
     Dates: start: 201912
  34. ETOPOSIDE [Concomitant]
     Active Substance: ETOPOSIDE
     Indication: Prostate cancer
     Dosage: UNK
     Route: 065
     Dates: start: 201912
  35. ETOPOSIDE [Concomitant]
     Active Substance: ETOPOSIDE
     Indication: Chemotherapy

REACTIONS (10)
  - Prostate cancer recurrent [Unknown]
  - Lymphadenopathy [Unknown]
  - Hydronephrosis [Unknown]
  - Disease progression [Unknown]
  - Blood urea abnormal [Unknown]
  - Blood electrolytes abnormal [Unknown]
  - Pelvic mass [Unknown]
  - Malignant transformation [Unknown]
  - Pulmonary embolism [Unknown]
  - Off label use [Unknown]

NARRATIVE: CASE EVENT DATE: 20191201
